FAERS Safety Report 19777219 (Version 2)
Quarter: 2021Q3

REPORT INFORMATION
  Report Type: Spontaneous
  Country: US (occurrence: US)
  Receive Date: 20210901
  Receipt Date: 20210916
  Transmission Date: 20211014
  Serious: Yes (Hospitalization, Other)
  Sender: FDA-Public Use
  Company Number: US-BLUEPRINT MEDICINES CORPORATION-SP-US-2021-001388

PATIENT
  Age: 68 Year
  Sex: Male

DRUGS (1)
  1. AYVAKIT [Suspect]
     Active Substance: AVAPRITINIB
     Indication: GASTROINTESTINAL STROMAL TUMOUR
     Route: 048
     Dates: start: 20200508

REACTIONS (5)
  - Seizure [Recovered/Resolved]
  - Fatigue [Not Recovered/Not Resolved]
  - Dysarthria [Recovered/Resolved]
  - Off label use [Unknown]
  - Transient ischaemic attack [Recovered/Resolved]

NARRATIVE: CASE EVENT DATE: 20200508
